FAERS Safety Report 8875402 (Version 1)
Quarter: 2012Q4

REPORT INFORMATION
  Report Type: 
  Country: ES (occurrence: ES)
  Receive Date: 20121029
  Receipt Date: 20121029
  Transmission Date: 20130627
  Serious: Yes (Life-Threatening, Hospitalization)
  Sender: FDA-Public Use
  Company Number: ES-B.I. PHARMACEUTICALS,INC./RIDGEFIELD-2012-ES-00416ES

PATIENT
  Age: 52 Year
  Sex: Female

DRUGS (6)
  1. PRADAXA [Suspect]
     Indication: CEREBROVASCULAR ACCIDENT
     Dosage: 110 mg
     Route: 048
     Dates: start: 20100528, end: 20120603
  2. TRANGOREX [Suspect]
     Indication: ATRIAL FIBRILLATION
     Dosage: 200 mg
     Route: 048
     Dates: end: 20120603
  3. DOXAZOSINA [Concomitant]
     Indication: HYPERTENSION
     Dosage: 2 mg
     Route: 048
     Dates: start: 2010, end: 20120603
  4. ENALAPRIL [Concomitant]
     Indication: HYPERTENSION
     Dosage: 20 mg
     Route: 048
     Dates: start: 2010, end: 20120603
  5. BUSCAPINA [Concomitant]
     Indication: RENAL COLIC
     Dosage: 10 mg
     Route: 048
     Dates: start: 20120523, end: 20120603
  6. HYDRAPRES [Concomitant]
     Indication: HYPERTENSION
     Dosage: 150 mg
     Route: 048
     Dates: start: 2011, end: 20120603

REACTIONS (5)
  - Basal ganglia haemorrhage [Recovered/Resolved with Sequelae]
  - Dysarthria [Unknown]
  - Hemiparesis [Unknown]
  - Facial paresis [Unknown]
  - Drug interaction [Unknown]
